FAERS Safety Report 16039097 (Version 3)
Quarter: 2020Q1

REPORT INFORMATION
  Report Type: Report from Study
  Country: JP (occurrence: JP)
  Receive Date: 20190306
  Receipt Date: 20200305
  Transmission Date: 20200409
  Serious: Yes (Death)
  Sender: FDA-Public Use
  Company Number: PHJP2019JP002745

PATIENT
  Age: 87 Year
  Sex: Male

DRUGS (2)
  1. MEKINIST [Suspect]
     Active Substance: TRAMETINIB DIMETHYL SULFOXIDE
     Indication: NON-SMALL CELL LUNG CANCER STAGE IV
     Dosage: 2 MG
     Route: 048
     Dates: start: 20190301, end: 20190302
  2. TAFINLAR [Suspect]
     Active Substance: DABRAFENIB MESYLATE
     Indication: NON-SMALL CELL LUNG CANCER STAGE IV
     Dosage: 300 MG
     Route: 048
     Dates: start: 20190301, end: 20190302

REACTIONS (2)
  - Non-small cell lung cancer recurrent [Fatal]
  - Malignant neoplasm progression [Fatal]

NARRATIVE: CASE EVENT DATE: 20190302
